FAERS Safety Report 13066697 (Version 3)
Quarter: 2017Q1

REPORT INFORMATION
  Report Type: Spontaneous
  Country: US (occurrence: US)
  Receive Date: 20161227
  Receipt Date: 20170111
  Transmission Date: 20170428
  Serious: Yes (Other)
  Sender: FDA-Public Use
  Company Number: US-ALLERGAN-1682154US

PATIENT
  Age: 86 Year
  Sex: Female
  Weight: 65.76 kg

DRUGS (3)
  1. LATANOPROST CF [Concomitant]
     Indication: GLAUCOMA
     Route: 047
  2. REFRESH [Concomitant]
     Active Substance: UNSPECIFIED INGREDIENT
     Indication: DRY EYE
     Dosage: UNK
     Route: 047
  3. LUMIGAN [Suspect]
     Active Substance: BIMATOPROST
     Indication: GLAUCOMA
     Dosage: 2 GTT, QHS
     Route: 047
     Dates: start: 201512

REACTIONS (7)
  - Cataract [Recovered/Resolved]
  - Blood pressure decreased [Recovered/Resolved]
  - Fatigue [Not Recovered/Not Resolved]
  - Depressed mood [Not Recovered/Not Resolved]
  - Eye irritation [Recovered/Resolved]
  - Angle closure glaucoma [Unknown]
  - Depression [Not Recovered/Not Resolved]
